FAERS Safety Report 4549027-X (Version None)
Quarter: 2004Q4

REPORT INFORMATION
  Report Type: 
  Country: None (occurrence: None)
  Receive Date: 20041227
  Receipt Date: 20041115
  Transmission Date: 20050328
  Serious: No
  Sender: FDA-Public Use
  Company Number: 04P-163-0269601-00

PATIENT
  Age: 42 Year
  Sex: Female
  Weight: 128.6 kg

DRUGS (2)
  1. HUMIRA [Suspect]
     Indication: RHEUMATOID ARTHRITIS
     Dosage: 40 MG, 1 IN 2 WK, SUBCUTANEOUS
     Route: 058
     Dates: start: 20031201
  2. AZATHIOPRINE [Concomitant]

REACTIONS (2)
  - NASAL SINUS DRAINAGE [None]
  - PNEUMONIA [None]
